FAERS Safety Report 17748152 (Version 1)
Quarter: 2020Q2

REPORT INFORMATION
  Report Type: Spontaneous
  Country: US (occurrence: US)
  Receive Date: 20200505
  Receipt Date: 20200505
  Transmission Date: 20200714
  Serious: No
  Sender: FDA-Public Use
  Company Number: US-GLAXOSMITHKLINE-US2020073516

PATIENT
  Sex: Female

DRUGS (1)
  1. ABREVA [Suspect]
     Active Substance: DOCOSANOL
     Indication: ORAL HERPES
     Dosage: UNK (5 TIMES A DAY)
     Dates: start: 20200411, end: 20200418

REACTIONS (7)
  - Application site scab [Recovering/Resolving]
  - Application site reaction [Recovering/Resolving]
  - Wrong technique in product usage process [Unknown]
  - Application site discolouration [Recovering/Resolving]
  - Application site haemorrhage [Recovering/Resolving]
  - Incorrect product administration duration [Unknown]
  - Application site scar [Recovering/Resolving]
